FAERS Safety Report 14339873 (Version 2)
Quarter: 2019Q3

REPORT INFORMATION
  Report Type: Spontaneous
  Country: US (occurrence: US)
  Receive Date: 20171230
  Receipt Date: 20190807
  Transmission Date: 20191004
  Serious: Yes (Other)
  Sender: FDA-Public Use
  Company Number: US-009507513-1712USA014671

PATIENT
  Age: 41 Year
  Sex: Female

DRUGS (1)
  1. KEYTRUDA [Suspect]
     Active Substance: PEMBROLIZUMAB
     Indication: MALIGNANT MELANOMA
     Dosage: 2 MG/KG Q3W; 10 MG/KG Q3W, OR 200 MG/INFUSION EVERY 2?3 WEEKS

REACTIONS (2)
  - Autoimmune thyroiditis [Unknown]
  - Hyperthyroidism [Unknown]
